FAERS Safety Report 9040039 (Version 1)
Quarter: 2013Q1

REPORT INFORMATION
  Report Type: Report from Study
  Country: US (occurrence: US)
  Receive Date: 20130130
  Receipt Date: 20130130
  Transmission Date: 20140127
  Serious: No
  Sender: FDA-Public Use
  Company Number: US-ABBOTT-12P-163-0951399-00

PATIENT
  Age: 64 Year
  Sex: Female

DRUGS (6)
  1. HUMIRA 40 MG/0.8 ML PEN [Suspect]
     Indication: CROHN^S DISEASE
     Dosage: 160MG
     Dates: start: 20120604, end: 20120604
  2. HUMIRA 40 MG/0.8 ML PEN [Suspect]
     Dosage: 80MG
     Dates: start: 20120619
  3. OMEPRAZOLE [Concomitant]
     Indication: DYSPEPSIA
     Dosage: DAILY
  4. LOMOTIL [Concomitant]
     Indication: DIARRHOEA
  5. PREDNISONE [Concomitant]
     Indication: CROHN^S DISEASE
     Dosage: DAILY
  6. VITAMIN D [Concomitant]
     Indication: PRODUCT USED FOR UNKNOWN INDICATION
     Dosage: DAILY

REACTIONS (1)
  - Flatulence [Not Recovered/Not Resolved]
